FAERS Safety Report 21240277 (Version 1)
Quarter: 2022Q3

REPORT INFORMATION
  Report Type: Spontaneous
  Country: US (occurrence: None)
  Receive Date: 20220819
  Receipt Date: 20220819
  Transmission Date: 20221027
  Serious: Yes (Hospitalization)
  Sender: FDA-Public Use
  Company Number: None

PATIENT
  Sex: Male

DRUGS (1)
  1. CAPECITABINE [Suspect]
     Active Substance: CAPECITABINE
     Dosage: 500MG BID ORAL
     Route: 048

REACTIONS (8)
  - Off label use [None]
  - Bacterial infection [None]
  - Device related infection [None]
  - Fall [None]
  - Device occlusion [None]
  - Onychoclasis [None]
  - Skin ulcer [None]
  - Nail avulsion [None]
